FAERS Safety Report 7081659-X (Version None)
Quarter: 2010Q4

REPORT INFORMATION
  Report Type: 
  Country: None (occurrence: None)
  Receive Date: 20101103
  Receipt Date: 20101028
  Transmission Date: 20110411
  Serious: Yes (Hospitalization)
  Sender: FDA-Public Use
  Company Number: BR-ABBOTT-10P-020-0679178-00

PATIENT
  Age: 46 Year
  Sex: Male

DRUGS (1)
  1. HUMIRA [Suspect]
     Indication: ERYTHRODERMIC PSORIASIS

REACTIONS (2)
  - CYANOSIS [None]
  - LYMPHADENOPATHY [None]
